FAERS Safety Report 15923032 (Version 2)
Quarter: 2019Q1

REPORT INFORMATION
  Report Type: Spontaneous
  Country: US (occurrence: US)
  Receive Date: 20190206
  Receipt Date: 20190329
  Transmission Date: 20190417
  Serious: No
  Sender: FDA-Public Use
  Company Number: US-GLAXOSMITHKLINE-US2019015773

PATIENT
  Age: 84 Year
  Sex: Female

DRUGS (3)
  1. ALBUTEROL INHALER [Concomitant]
     Active Substance: ALBUTEROL
     Dosage: UNK
  2. OXYGEN. [Concomitant]
     Active Substance: OXYGEN
     Dosage: UNK
  3. ANORO ELLIPTA [Suspect]
     Active Substance: UMECLIDINIUM BROMIDE\VILANTEROL TRIFENATATE
     Indication: PULMONARY HYPERTENSION
     Dosage: 1 PUFF(S), 1D
     Route: 055

REACTIONS (2)
  - Product complaint [Unknown]
  - Product dose omission [Not Recovered/Not Resolved]

NARRATIVE: CASE EVENT DATE: 20190127
